FAERS Safety Report 4665550-1 (Version None)
Quarter: 2005Q2

REPORT INFORMATION
  Report Type: 
  Country: None (occurrence: None)
  Receive Date: 20050518
  Receipt Date: 20050518
  Transmission Date: 20051028
  Serious: Yes (Hospitalization)
  Sender: FDA-Public Use
  Company Number: None

PATIENT
  Age: 43 Year
  Sex: Female
  Weight: 53.0709 kg

DRUGS (5)
  1. DOCETAXEL [Suspect]
     Indication: BREAST CANCER
     Dosage: 118 MG IV  EVERY 2 WEEKS X 4 CYCLES
     Route: 042
     Dates: start: 20050428
  2. DOCETAXEL [Suspect]
     Indication: BREAST CANCER
     Dosage: 118 MG IV  EVERY 2 WEEKS X 4 CYCLES
     Route: 042
     Dates: start: 20050513
  3. PHENERGAN [Concomitant]
  4. PERCOCET [Concomitant]
  5. MOTRIN [Concomitant]

REACTIONS (4)
  - CLOSTRIDIAL INFECTION [None]
  - DEHYDRATION [None]
  - DIARRHOEA [None]
  - PYREXIA [None]
